FAERS Safety Report 6084036-3 (Version None)
Quarter: 2009Q1

REPORT INFORMATION
  Report Type: 
  Country: None (occurrence: None)
  Receive Date: 20090217
  Receipt Date: 20090217
  Transmission Date: 20090719
  Serious: Yes (Other)
  Sender: FDA-Public Use
  Company Number: None

PATIENT
  Sex: Female
  Weight: 80.7403 kg

DRUGS (1)
  1. PROPOXYPHENE HCL AND ACETAMINOPHEN [Suspect]
     Indication: ARTHRITIS
     Dosage: 1 TAB 4 HOURS PO
     Route: 048
     Dates: start: 20090126, end: 20090214

REACTIONS (12)
  - ARTHRALGIA [None]
  - BURNING SENSATION [None]
  - DRY MOUTH [None]
  - HEADACHE [None]
  - HOT FLUSH [None]
  - LOSS OF CONSCIOUSNESS [None]
  - MYALGIA [None]
  - NAUSEA [None]
  - PAIN [None]
  - SOMNOLENCE [None]
  - VISION BLURRED [None]
  - VOMITING [None]
